FAERS Safety Report 6438783-1 (Version None)
Quarter: 2009Q4

REPORT INFORMATION
  Report Type: 
  Country: None (occurrence: None)
  Receive Date: 20091113
  Receipt Date: 20091104
  Transmission Date: 20100525
  Serious: Yes (Other)
  Sender: FDA-Public Use
  Company Number: US-JNJFOC-20091102312

PATIENT
  Sex: Female
  Weight: 78.02 kg

DRUGS (3)
  1. DURAGESIC-100 [Suspect]
     Route: 062
  2. DURAGESIC-100 [Suspect]
     Indication: ARTHRALGIA
     Route: 062
  3. METHOTREXATE [Concomitant]
     Indication: RHEUMATOID ARTHRITIS
     Route: 030

REACTIONS (11)
  - DEPRESSION [None]
  - FATIGUE [None]
  - GASTRIC DISORDER [None]
  - MIGRAINE [None]
  - NASOPHARYNGITIS [None]
  - OROPHARYNGEAL PAIN [None]
  - PANIC ATTACK [None]
  - PHARYNGEAL DISORDER [None]
  - PYREXIA [None]
  - RESTLESS LEGS SYNDROME [None]
  - RHEUMATOID ARTHRITIS [None]
